FAERS Safety Report 18325578 (Version 1)
Quarter: 2020Q3

REPORT INFORMATION
  Report Type: Spontaneous
  Country: CH (occurrence: CH)
  Receive Date: 20200929
  Receipt Date: 20200929
  Transmission Date: 20201103
  Serious: Yes (Other)
  Sender: FDA-Public Use
  Company Number: NVSC2020CH264021

PATIENT
  Sex: Male

DRUGS (1)
  1. TOBI PODHALER [Suspect]
     Active Substance: TOBRAMYCIN
     Indication: PRIMARY CILIARY DYSKINESIA
     Dosage: 4 DF, BID (WITH A CYCLE OF 28 DAYS AND WITH A PAUSE OF 28 DAYS, 4 IN THE MORNING AND 4 IN THE EVENIN
     Route: 065
     Dates: start: 201905, end: 202003

REACTIONS (2)
  - Bronchial obstruction [Recovered/Resolved]
  - Off label use [Unknown]

NARRATIVE: CASE EVENT DATE: 201905
